FAERS Safety Report 8976178 (Version 1)
Quarter: 2012Q4

REPORT INFORMATION
  Report Type: 
  Country: US (occurrence: US)
  Receive Date: 20121220
  Receipt Date: 20121220
  Transmission Date: 20130627
  Serious: Yes (Disabling)
  Sender: FDA-Public Use
  Company Number: US-009507513-1212USA007569

PATIENT

DRUGS (1)
  1. PROSCAR [Suspect]
     Indication: ANDROGENETIC ALOPECIA
     Route: 048

REACTIONS (7)
  - Orgasm abnormal [Unknown]
  - Loss of libido [Unknown]
  - Erectile dysfunction [Unknown]
  - Anxiety [Unknown]
  - Depression [Unknown]
  - Intentional drug misuse [Unknown]
  - Fatigue [Unknown]
